FAERS Safety Report 5818644-9 (Version None)
Quarter: 2008Q3

REPORT INFORMATION
  Report Type: 
  Country: None (occurrence: None)
  Receive Date: 20080717
  Receipt Date: 20080717
  Transmission Date: 20090109
  Serious: Yes (Other)
  Sender: FDA-Public Use
  Company Number: None

PATIENT
  Age: 78 Year
  Sex: Female
  Weight: 68.0396 kg

DRUGS (1)
  1. PRO DEN RX 0.63% STANNOUS FLUORIDE [Suspect]
     Indication: TOOTH DISORDER
     Dosage: SOME DAYS I USED X1 DAY DILUTED IT AND GARGLED
     Dates: start: 20080415

REACTIONS (2)
  - ODYNOPHAGIA [None]
  - THROAT IRRITATION [None]
